FAERS Safety Report 14976553 (Version 1)
Quarter: 2018Q2

REPORT INFORMATION
  Report Type: Spontaneous
  Country: US (occurrence: US)
  Receive Date: 20180605
  Receipt Date: 20180605
  Transmission Date: 20180711
  Serious: No
  Sender: FDA-Public Use
  Company Number: US-SA-2018SA138414

PATIENT
  Sex: Female

DRUGS (15)
  1. MODAFINIL. [Concomitant]
     Active Substance: MODAFINIL
  2. ALENDRONATE SODIUM. [Concomitant]
     Active Substance: ALENDRONATE SODIUM
  3. TERIFLUNOMIDE [Suspect]
     Active Substance: TERIFLUNOMIDE
     Dosage: 14 MG, QD
     Route: 048
  4. CIPROFLOXACIN HCL [Concomitant]
     Active Substance: CIPROFLOXACIN HYDROCHLORIDE
  5. RANITIDINE. [Concomitant]
     Active Substance: RANITIDINE
  6. LEVOXYL [Concomitant]
     Active Substance: LEVOTHYROXINE SODIUM
  7. LOMOTIL [LOPERAMIDE HYDROCHLORIDE] [Concomitant]
  8. PROGESTERONE. [Concomitant]
     Active Substance: PROGESTERONE
  9. FLUZONE HIGH DOSE [Concomitant]
  10. XANAX [Concomitant]
     Active Substance: ALPRAZOLAM
  11. PROZAC [Concomitant]
     Active Substance: FLUOXETINE HYDROCHLORIDE
  12. AMPYRA [Concomitant]
     Active Substance: DALFAMPRIDINE
  13. CRESTOR [Concomitant]
     Active Substance: ROSUVASTATIN CALCIUM
  14. OXYBUTYNIN. [Concomitant]
     Active Substance: OXYBUTYNIN CHLORIDE
  15. TEMAZEPAM. [Concomitant]
     Active Substance: TEMAZEPAM

REACTIONS (2)
  - Fall [Recovered/Resolved]
  - Urinary incontinence [Not Recovered/Not Resolved]
